FAERS Safety Report 7542168-4 (Version None)
Quarter: 2011Q2

REPORT INFORMATION
  Report Type: 
  Country: None (occurrence: None)
  Receive Date: 20110524
  Receipt Date: 20110223
  Transmission Date: 20111010
  Serious: No
  Sender: FDA-Public Use
  Company Number: 028166

PATIENT
  Sex: Female
  Weight: 52.2 kg

DRUGS (9)
  1. METRONIDAZOLE [Concomitant]
  2. TRAZODONE HCL [Concomitant]
  3. CIMZIA [Suspect]
     Indication: CROHN'S DISEASE
     Dosage: (400 MG 1X/MONTH ORAL)
     Route: 048
     Dates: start: 20101209, end: 20110106
  4. METHENAMINE HIPPURATE [Concomitant]
  5. MULTIVITAMIN /01229101/ [Concomitant]
  6. ALENDRONATE SODIUM [Concomitant]
  7. LEVETIRACETAM [Concomitant]
  8. ALPRAZOLAM [Concomitant]
  9. BALSALAZIDE DISODIUM [Concomitant]

REACTIONS (1)
  - URINARY TRACT INFECTION [None]
